FAERS Safety Report 5970848-0 (Version None)
Quarter: 2008Q4

REPORT INFORMATION
  Report Type: 
  Country: None (occurrence: None)
  Receive Date: 20081127
  Receipt Date: 20081120
  Transmission Date: 20090506
  Serious: Yes (Hospitalization)
  Sender: FDA-Public Use
  Company Number: US-JNJFOC-20081105339

PATIENT
  Sex: Male
  Weight: 99.79 kg

DRUGS (5)
  1. DURAGESIC-100 [Suspect]
     Indication: BACK PAIN
     Route: 062
  2. LORTAB [Concomitant]
     Indication: PAIN
     Dosage: AS NEEDED
     Route: 048
  3. SOMA [Concomitant]
     Indication: MUSCLE RELAXANT THERAPY
     Route: 048
  4. BACLOFEN [Concomitant]
     Indication: MUSCLE SPASMS
     Route: 048
  5. WELLBUTRAIN [Concomitant]
     Indication: NEURALGIA
     Route: 048

REACTIONS (8)
  - DEVICE FAILURE [None]
  - INAPPROPRIATE SCHEDULE OF DRUG ADMINISTRATION [None]
  - PARALYSIS [None]
  - POST PROCEDURAL COMPLICATION [None]
  - POSTOPERATIVE WOUND INFECTION [None]
  - SURGERY [None]
  - TRANSIENT ISCHAEMIC ATTACK [None]
  - VASCULAR HEADACHE [None]
